FAERS Safety Report 15966163 (Version 5)
Quarter: 2020Q3

REPORT INFORMATION
  Report Type: Report from Study
  Country: None (occurrence: IL)
  Receive Date: 20190215
  Receipt Date: 20200928
  Transmission Date: 20201102
  Serious: Yes (Hospitalization)
  Sender: FDA-Public Use
  Company Number: IL-ABBVIE-19S-082-2659888-00

PATIENT
  Age: 70 Year
  Sex: Male

DRUGS (3)
  1. DUODOPA [Suspect]
     Active Substance: CARBIDOPA\LEVODOPA
     Dosage: MD 18ML, CD 3.6ML/HOUR, ED 2ML
     Route: 050
     Dates: start: 201902
  2. DUODOPA [Suspect]
     Active Substance: CARBIDOPA\LEVODOPA
     Dosage: MD 18ML, CD 3.6ML/HOUR, ED 2ML
     Route: 050
     Dates: start: 20190210, end: 201902
  3. DUODOPA [Suspect]
     Active Substance: CARBIDOPA\LEVODOPA
     Indication: PARKINSON^S DISEASE
     Dosage: MD 15ML, CD 3ML/HOUR, ED 2ML
     Route: 050
     Dates: start: 20170109, end: 20190209

REACTIONS (8)
  - Nausea [Unknown]
  - Volvulus [Unknown]
  - Bezoar [Unknown]
  - Abdominal pain [Unknown]
  - Small intestinal perforation [Unknown]
  - Vomiting [Unknown]
  - Incorrect route of product administration [Recovered/Resolved]
  - Device occlusion [Recovered/Resolved]

NARRATIVE: CASE EVENT DATE: 20190210
